FAERS Safety Report 15850229 (Version 1)
Quarter: 2019Q1

REPORT INFORMATION
  Report Type: Spontaneous
  Country: US (occurrence: US)
  Receive Date: 20190121
  Receipt Date: 20190121
  Transmission Date: 20190417
  Serious: No
  Sender: FDA-Public Use
  Company Number: US-PFIZER INC-2019021251

PATIENT
  Age: 79 Year
  Sex: Female
  Weight: 81.65 kg

DRUGS (2)
  1. VENLAFAXINE HCL [Suspect]
     Active Substance: VENLAFAXINE HYDROCHLORIDE
     Indication: MAJOR DEPRESSION
     Dosage: 150 MG, DAILY
     Route: 048
     Dates: start: 201810
  2. MOBIC [Concomitant]
     Active Substance: MELOXICAM
     Indication: ARTHRITIS
     Dosage: UNK, 1X/DAY (TAKES 1/2 TABLET )
     Route: 048

REACTIONS (6)
  - Confusional state [Not Recovered/Not Resolved]
  - Vertigo [Not Recovered/Not Resolved]
  - Drug intolerance [Unknown]
  - Feeling abnormal [Not Recovered/Not Resolved]
  - Thinking abnormal [Not Recovered/Not Resolved]
  - Memory impairment [Not Recovered/Not Resolved]

NARRATIVE: CASE EVENT DATE: 201811
